FAERS Safety Report 16628693 (Version 6)
Quarter: 2019Q4

REPORT INFORMATION
  Report Type: Spontaneous
  Country: US (occurrence: US)
  Receive Date: 20190725
  Receipt Date: 20191227
  Transmission Date: 20200122
  Serious: No
  Sender: FDA-Public Use
  Company Number: US-PFIZER INC-2019316558

PATIENT
  Age: 74 Year
  Sex: Female
  Weight: 67 kg

DRUGS (1)
  1. IBRANCE [Suspect]
     Active Substance: PALBOCICLIB
     Indication: BREAST CANCER METASTATIC
     Dosage: 125 MG, CYCLIC (D1-D21 Q28 DAYS)
     Route: 048
     Dates: start: 20190712

REACTIONS (6)
  - White blood cell count decreased [Unknown]
  - Weight decreased [Unknown]
  - Laryngitis [Unknown]
  - Flatulence [Recovering/Resolving]
  - Fatigue [Unknown]
  - Alopecia [Unknown]

NARRATIVE: CASE EVENT DATE: 2019
